FAERS Safety Report 21883795 (Version 1)
Quarter: 2023Q1

REPORT INFORMATION
  Report Type: Spontaneous
  Country: JP (occurrence: JP)
  Receive Date: 20230119
  Receipt Date: 20230119
  Transmission Date: 20230418
  Serious: Yes (Death, Hospitalization)
  Sender: FDA-Public Use
  Company Number: JP-STRIDES ARCOLAB LIMITED-2023SP000965

PATIENT
  Age: 72 Year
  Sex: Male
  Weight: 163 kg

DRUGS (4)
  1. CISPLATIN [Suspect]
     Active Substance: CISPLATIN
     Indication: Testis cancer
     Dosage: UNK; POSTOPERATIVE CHEMOTHERAPY WITH FOUR COURSES
     Route: 065
     Dates: start: 202011
  2. CISPLATIN [Suspect]
     Active Substance: CISPLATIN
     Indication: Metastases to lymph nodes
  3. ETOPOSIDE [Suspect]
     Active Substance: ETOPOSIDE
     Indication: Testis cancer
     Dosage: UNK; POSTOPERATIVE CHEMOTHERAPY WITH FOUR COURSES
     Route: 065
     Dates: start: 202011
  4. ETOPOSIDE [Suspect]
     Active Substance: ETOPOSIDE
     Indication: Metastases to lymph nodes

REACTIONS (1)
  - Drug ineffective [Fatal]
